FAERS Safety Report 7545032-X (Version None)
Quarter: 2011Q2

REPORT INFORMATION
  Report Type: 
  Country: None (occurrence: None)
  Receive Date: 20110614
  Receipt Date: 20110127
  Transmission Date: 20111010
  Serious: Yes (Hospitalization, Other)
  Sender: FDA-Public Use
  Company Number: US-BAYER-201022763NA

PATIENT
  Age: 23 Year
  Sex: Female
  Weight: 82 kg

DRUGS (24)
  1. GABAPENTIN [Concomitant]
     Indication: PAIN
  2. NEURONTIN [Concomitant]
     Indication: SLEEP DISORDER
     Dosage: 300 MG (DAILY DOSE), ,
  3. TOPAMAX [Concomitant]
     Dosage: AT BEDTIME
  4. HYDROXYZINE [Concomitant]
     Indication: ANXIETY
  5. NAPROXEN (ALEVE) [Concomitant]
  6. ALBUTEROL SULFATE AUTOHALER [Concomitant]
  7. PROTON PUMP INHIBITORS [Concomitant]
  8. ANTACIDS [Concomitant]
  9. PROTON PUMP INHIBITORS [Concomitant]
  10. AMITRIPTYLINE HYDROCHLORIDE [Concomitant]
     Indication: HEADACHE
     Dosage: 10 MG (DAILY DOSE), QD,
  11. ZITHROMAX [Concomitant]
  12. ANTI-INFLAMMATORIES [Concomitant]
  13. YASMIN [Suspect]
     Indication: CONTRACEPTION
     Dates: start: 20070701, end: 20080401
  14. PREVACID [Concomitant]
  15. YAZ [Suspect]
     Indication: CONTRACEPTION
     Route: 048
     Dates: start: 20070101, end: 20070701
  16. AMITRIPTYLINE HYDROCHLORIDE [Concomitant]
     Indication: DEPRESSION
  17. FIORICET [Concomitant]
  18. ACIPHEX [Concomitant]
  19. ZOMIG [Concomitant]
  20. TRIPTAN [Concomitant]
  21. IBUPROFEN [Concomitant]
  22. TYLENOL-500 [Concomitant]
  23. TORADOL [Concomitant]
  24. ANTIINFLAMMATORY/ANTIRHEUMATIC PRODUCTS [Concomitant]

REACTIONS (8)
  - OESOPHAGITIS [None]
  - GALLBLADDER CHOLESTEROLOSIS [None]
  - PEPTIC ULCER [None]
  - ABDOMINAL PAIN [None]
  - ABDOMINAL PAIN UPPER [None]
  - CHOLECYSTITIS CHRONIC [None]
  - GASTRITIS [None]
  - DYSPEPSIA [None]
